FAERS Safety Report 15432166 (Version 1)
Quarter: 2018Q3

REPORT INFORMATION
  Report Type: Report from Study
  Country: RO (occurrence: RO)
  Receive Date: 20180926
  Receipt Date: 20180926
  Transmission Date: 20181010
  Serious: Yes (Death, Life-Threatening, Hospitalization, Other)
  Sender: FDA-Public Use
  Company Number: RO-GILEAD-2018-0364472

PATIENT
  Age: 52 Year
  Sex: Male

DRUGS (2)
  1. LEDIPASVIR/SOFOSBUVIR [Suspect]
     Active Substance: LEDIPASVIR\SOFOSBUVIR
     Indication: HEPATIC CIRRHOSIS
  2. LEDIPASVIR/SOFOSBUVIR [Suspect]
     Active Substance: LEDIPASVIR\SOFOSBUVIR
     Indication: HEPATITIS C
     Dosage: 1 DF, QD
     Route: 048
     Dates: start: 20180717, end: 201808

REACTIONS (20)
  - Cardiac arrest [Fatal]
  - Hepatocellular injury [Unknown]
  - Hyperbilirubinaemia [Unknown]
  - Upper gastrointestinal haemorrhage [Recovered/Resolved]
  - Abdominal pain [Unknown]
  - Haemoglobin decreased [Unknown]
  - Bradycardia [Unknown]
  - Hepatorenal syndrome [Not Recovered/Not Resolved]
  - Clostridial infection [Unknown]
  - Neurological symptom [Unknown]
  - Haemodynamic instability [Unknown]
  - Nausea [Unknown]
  - Splenomegaly [Unknown]
  - Dyspnoea [Unknown]
  - Endotracheal intubation [Unknown]
  - Vomiting [Unknown]
  - Ascites [Unknown]
  - Hypotension [Unknown]
  - Metabolic acidosis [Unknown]
  - Somnolence [Unknown]

NARRATIVE: CASE EVENT DATE: 201808
